FAERS Safety Report 9426912 (Version 3)
Quarter: 2013Q4

REPORT INFORMATION
  Report Type: Report from Study
  Country: US (occurrence: US)
  Receive Date: 20130730
  Receipt Date: 20131113
  Transmission Date: 20140711
  Serious: Yes (Hospitalization)
  Sender: FDA-Public Use
  Company Number: US-ASTELLAS-2013US007815

PATIENT
  Age: 13 Year
  Sex: Female
  Weight: 64 kg

DRUGS (6)
  1. TACROLIMUS OINTMENT [Suspect]
     Indication: DERMATITIS ATOPIC
     Dosage: 0.03 %, WEEKLY
     Route: 061
     Dates: start: 20080827
  2. TACROLIMUS OINTMENT [Suspect]
     Dosage: 0.03 %, UNKNOWN/D
     Route: 061
     Dates: start: 20110831
  3. PROVENTIL HFA                      /00139501/ [Concomitant]
     Indication: ASTHMA
     Dosage: 90 MG, Q6 HOURS
     Route: 048
     Dates: start: 20110831
  4. QVAR [Concomitant]
     Indication: ASTHMA
     Dosage: 40 MG, BID
     Route: 048
     Dates: start: 20110831
  5. BETAMETHASONE [Concomitant]
     Indication: ECZEMA
     Dosage: 0.1 %, UNKNOWN/D
     Route: 061
     Dates: start: 20110831
  6. EPINEPHRINE [Concomitant]
     Indication: FOOD ALLERGY
     Dosage: 0.3 DF, PRN
     Route: 030
     Dates: start: 201108

REACTIONS (3)
  - Asthma [Recovered/Resolved]
  - Status asthmaticus [Recovered/Resolved]
  - Pneumonia [Recovered/Resolved]
